FAERS Safety Report 17162627 (Version 1)
Quarter: 2019Q4

REPORT INFORMATION
  Report Type: Spontaneous
  Country: US (occurrence: US)
  Receive Date: 20191216
  Receipt Date: 20191216
  Transmission Date: 20200122
  Serious: Yes (Hospitalization)
  Sender: FDA-Public Use
  Company Number: None

PATIENT
  Age: 62 Year
  Sex: Female

DRUGS (11)
  1. MULTI-VITAMINS [Concomitant]
  2. VIT D [Concomitant]
     Active Substance: VITAMIN D NOS
  3. FISH OIL [Concomitant]
     Active Substance: FISH OIL
  4. VIT B-12 [Concomitant]
  5. GLATIRAMER [Suspect]
     Active Substance: GLATIRAMER
     Indication: MULTIPLE SCLEROSIS
     Dosage: ?          OTHER FREQUENCY:3 TIMES PER WEEK;?
     Route: 058
     Dates: start: 20180515
  6. AMPHET /DEXTROAMPHETAMINE [Concomitant]
  7. AMPYRA [Concomitant]
     Active Substance: DALFAMPRIDINE
  8. VESICARE [Concomitant]
     Active Substance: SOLIFENACIN SUCCINATE
  9. RESPA- A.R. [Concomitant]
  10. FLUTICASONE NASAL [Concomitant]
     Active Substance: FLUTICASONE
  11. SINGULAIR [Concomitant]
     Active Substance: MONTELUKAST SODIUM

REACTIONS (3)
  - Gait disturbance [None]
  - Thrombosis [None]
  - Dysstasia [None]

NARRATIVE: CASE EVENT DATE: 20191023
